FAERS Safety Report 5508051-0 (Version None)
Quarter: 2007Q4

REPORT INFORMATION
  Report Type: 
  Country: None (occurrence: None)
  Receive Date: 20071106
  Receipt Date: 20071025
  Transmission Date: 20080405
  Serious: Yes (Disabling)
  Sender: FDA-Public Use
  Company Number: DK-PFIZER INC-2007089622

PATIENT
  Sex: Male

DRUGS (3)
  1. ZYVOXID SUSPENSION, ORAL [Suspect]
     Indication: STAPHYLOCOCCAL INFECTION
  2. AVELOX [Suspect]
     Indication: STAPHYLOCOCCAL INFECTION
     Dosage: DAILY DOSE:400MG
     Route: 048
     Dates: start: 20060201, end: 20060309
  3. DICILLIN [Concomitant]
     Indication: STAPHYLOCOCCAL INFECTION

REACTIONS (6)
  - DISTURBANCE IN ATTENTION [None]
  - DYSGEUSIA [None]
  - HYPOKINESIA [None]
  - OEDEMA PERIPHERAL [None]
  - PAIN [None]
  - PARAESTHESIA [None]
